FAERS Safety Report 4923403-5 (Version None)
Quarter: 2006Q1

REPORT INFORMATION
  Report Type: 
  Country: None (occurrence: None)
  Receive Date: 20060223
  Receipt Date: 20060223
  Transmission Date: 20060701
  Serious: No
  Sender: FDA-Public Use
  Company Number: None

PATIENT
  Sex: Male

DRUGS (3)
  1. TERAZOSIN [Suspect]
     Indication: BENIGN PROSTATIC HYPERPLASIA
     Dosage: 5 MG QD STOPPED 3 WEEKS PRIOR TO SURGERY
  2. ASPIRIN [Concomitant]
  3. BLOOD PRESSURE MEDICINE [Concomitant]

REACTIONS (2)
  - CATARACT OPERATION COMPLICATION [None]
  - IRIS DISORDER [None]
